FAERS Safety Report 4338383-3 (Version None)
Quarter: 2004Q2

REPORT INFORMATION
  Report Type: 
  Country: None (occurrence: None)
  Receive Date: 20040407
  Receipt Date: 20040325
  Transmission Date: 20050107
  Serious: Yes (Hospitalization)
  Sender: FDA-Public Use
  Company Number: 2003AP03795

PATIENT
  Age: 62 Year
  Sex: Male

DRUGS (9)
  1. IRESSA [Suspect]
     Indication: LUNG ADENOCARCINOMA
     Dosage: 250 MG DAILY PO
     Route: 048
     Dates: start: 20030922, end: 20031019
  2. IRESSA [Suspect]
     Indication: NON-SMALL CELL LUNG CANCER
     Dosage: 250 MG DAILY PO
     Route: 048
     Dates: start: 20030922, end: 20031019
  3. EUGLUCON [Concomitant]
  4. JUVELA NICOTINATE [Concomitant]
  5. CYANOCOBALAMIN [Concomitant]
  6. CISPLATIN [Concomitant]
  7. TAXOTERE [Concomitant]
  8. CARBOPLATIN [Concomitant]
  9. RADIATION THERAPY [Concomitant]

REACTIONS (4)
  - CEREBELLAR INFARCTION [None]
  - DERMATITIS ACNEIFORM [None]
  - ECZEMA ASTEATOTIC [None]
  - FIBRIN DEGRADATION PRODUCTS INCREASED [None]
